FAERS Safety Report 13738621 (Version 1)
Quarter: 2017Q3

REPORT INFORMATION
  Report Type: Report from Study
  Country: US (occurrence: US)
  Receive Date: 20170710
  Receipt Date: 20170710
  Transmission Date: 20171127
  Serious: No
  Sender: FDA-Public Use
  Company Number: US-SAOL THERAPEUTICS-2016SAO00940

PATIENT
  Sex: Male

DRUGS (14)
  1. LIORESAL [Suspect]
     Active Substance: BACLOFEN
     Dosage: 93.39 ?G, \DAY
     Route: 037
  2. LIORESAL [Suspect]
     Active Substance: BACLOFEN
     Dosage: 99.9 ?G, \DAY
     Route: 037
  3. BUPIVICAINE [Suspect]
     Active Substance: BUPIVACAINE
     Dosage: UNK
     Route: 037
     Dates: start: 20151221
  4. MORPHINE SULFATE. [Suspect]
     Active Substance: MORPHINE SULFATE
     Dosage: 199.7 ?G, \DAY
     Route: 037
     Dates: start: 20140512
  5. LIORESAL [Suspect]
     Active Substance: BACLOFEN
     Dosage: 109.97 ?G, UNK
     Route: 037
     Dates: start: 20140429
  6. BACLOFEN. [Suspect]
     Active Substance: BACLOFEN
     Dosage: 115.1 ?G, \DAY
     Route: 037
  7. BUPIVICAINE [Suspect]
     Active Substance: BUPIVACAINE
     Dosage: 3.454 MG, \DAY
     Route: 037
  8. HYDROMORPHONE [Suspect]
     Active Substance: HYDROMORPHONE
     Dosage: 54.98 ?G, \DAY
     Route: 037
     Dates: start: 20141119, end: 20141123
  9. LYRICA [Suspect]
     Active Substance: PREGABALIN
     Route: 048
  10. COMPOUNDED BACLOFEN [Suspect]
     Active Substance: BACLOFEN
     Dosage: 90 ?G, UNK
     Route: 037
     Dates: start: 20141125
  11. BUPIVICAINE [Suspect]
     Active Substance: BUPIVACAINE
     Dosage: 2.942 UNK, UNK
     Route: 037
     Dates: start: 20151022
  12. BACLOFEN ORAL [Suspect]
     Active Substance: BACLOFEN
     Route: 048
  13. COMPOUNDED BACLOFEN [Suspect]
     Active Substance: BACLOFEN
     Dosage: 110 ?G, \DAY
     Route: 037
  14. BACLOFEN. [Suspect]
     Active Substance: BACLOFEN
     Dosage: 98.1 ?G, UNK
     Route: 037
     Dates: start: 20151022, end: 20160616

REACTIONS (19)
  - Dizziness [Not Recovered/Not Resolved]
  - Hyperhidrosis [Not Recovered/Not Resolved]
  - Therapy non-responder [Recovered/Resolved]
  - Pyrexia [Not Recovered/Not Resolved]
  - Nausea [Not Recovered/Not Resolved]
  - Muscular weakness [Recovered/Resolved]
  - Muscle spasticity [Recovered/Resolved]
  - Muscle tightness [Not Recovered/Not Resolved]
  - Musculoskeletal stiffness [Unknown]
  - Vomiting [Not Recovered/Not Resolved]
  - Muscle spasms [Not Recovered/Not Resolved]
  - Gait disturbance [Not Recovered/Not Resolved]
  - Pain [Not Recovered/Not Resolved]
  - Chills [Not Recovered/Not Resolved]
  - Arthralgia [Not Recovered/Not Resolved]
  - Pain in extremity [Recovered/Resolved]
  - Asthenia [Not Recovered/Not Resolved]
  - Urinary retention [Not Recovered/Not Resolved]
  - Burning sensation [Recovered/Resolved]

NARRATIVE: CASE EVENT DATE: 20160714
